FAERS Safety Report 13652834 (Version 1)
Quarter: 2017Q2

REPORT INFORMATION
  Report Type: Spontaneous
  Country: US (occurrence: US)
  Receive Date: 20170614
  Receipt Date: 20170614
  Transmission Date: 20170830
  Serious: No
  Sender: FDA-Public Use
  Company Number: US-ROCHE-1298737

PATIENT
  Sex: Male
  Weight: 91 kg

DRUGS (10)
  1. XELODA [Suspect]
     Active Substance: CAPECITABINE
     Dosage: 14 DAYS ON AND 7DAYS OFF
     Route: 048
     Dates: start: 20140116
  2. XELODA [Suspect]
     Active Substance: CAPECITABINE
     Dosage: 2 TABS AM AND PM
     Route: 048
     Dates: start: 20130829
  3. ALLOPURINOL. [Concomitant]
     Active Substance: ALLOPURINOL
  4. COREG [Concomitant]
     Active Substance: CARVEDILOL
  5. ASA [Concomitant]
     Active Substance: ASPIRIN
  6. XELODA [Suspect]
     Active Substance: CAPECITABINE
     Indication: COLON CANCER
     Dosage: 14 DAYS ON AND 7DAYS OFF
     Route: 048
     Dates: start: 20130828
  7. ATACAND [Concomitant]
     Active Substance: CANDESARTAN CILEXETIL
  8. ASPIRIN. [Concomitant]
     Active Substance: ASPIRIN
  9. HYDROCHLOROTHIAZIDE. [Concomitant]
     Active Substance: HYDROCHLOROTHIAZIDE
  10. SIMVASTATIN. [Concomitant]
     Active Substance: SIMVASTATIN

REACTIONS (4)
  - Fatigue [Unknown]
  - Pain in extremity [Unknown]
  - Nausea [Not Recovered/Not Resolved]
  - Asthenia [Unknown]
